FAERS Safety Report 14343842 (Version 3)
Quarter: 2018Q3

REPORT INFORMATION
  Report Type: Spontaneous
  Country: US (occurrence: US)
  Receive Date: 20180102
  Receipt Date: 20180913
  Transmission Date: 20181010
  Serious: Yes (Death, Other)
  Sender: FDA-Public Use
  Company Number: US-PFIZER INC-2017463331

PATIENT
  Age: 62 Year
  Sex: Female

DRUGS (17)
  1. LORAZEPAM. [Concomitant]
     Active Substance: LORAZEPAM
     Indication: INSOMNIA
  2. IBRANCE [Suspect]
     Active Substance: PALBOCICLIB
     Dosage: 125 MG, CYCLIC (DAILY X21)
     Route: 048
     Dates: start: 20171026, end: 20171212
  3. ROXANE [Concomitant]
     Indication: PAIN
     Dosage: UNK
  4. NYSTATIN. [Concomitant]
     Active Substance: NYSTATIN
     Dosage: 5 ML, AS NEEDED [AS DIRECTED EVERY 4 HOURS,100000 UNIT/ML, SUSPENSION 100 ML]
  5. DIPHENHYDRAMINE. [Concomitant]
     Active Substance: DIPHENHYDRAMINE
     Dosage: UNK, [12.5 MG/5ML, ELIXIR 50 MG]
  6. COMPAZINE [Concomitant]
     Active Substance: PROCHLORPERAZINE MALEATE
     Dosage: 10 MG, AS NEEDED [TAKE 1 TAB BY MOUTH FOUR TIMES PER DAY AS NEEDED]
     Route: 048
  7. IBRANCE [Suspect]
     Active Substance: PALBOCICLIB
     Indication: OVARIAN CANCER
     Dosage: 125 MG, CYCLIC [QD X21D Q28D]
     Route: 048
     Dates: start: 201307
  8. DEXAMETHASONE. [Concomitant]
     Active Substance: DEXAMETHASONE
     Dosage: 4 MG, DAILY [AS DIRECTED. TAKE 1 TABLET DAILY FOR 2 DAYS AFTER CARBOPLATIN]
     Route: 048
  9. ZOFRAN [Concomitant]
     Active Substance: ONDANSETRON HYDROCHLORIDE
     Dosage: 8 MG, AS NEEDED [TAKE 1 TAB DAILY FOR 2 DAYS AFTER CARBOPLATIN]
     Route: 048
  10. LORAZEPAM. [Concomitant]
     Active Substance: LORAZEPAM
     Indication: NAUSEA
     Dosage: 0.5 MG, AS NEEDED [AS DIRECTED, EVERY 6 HOURS), OR(AT BEDTIME)]
     Route: 048
  11. DEXAMETHASONE. [Concomitant]
     Active Substance: DEXAMETHASONE
     Dosage: UNK, ^[0.5 MG/5ML SOLUTION 6,000 MCG]^[0.5 MG/5ML SOLUTION 6000 MCG]
  12. DOXYCYCLINE HYCLATE. [Concomitant]
     Active Substance: DOXYCYCLINE HYCLATE
     Dosage: 500 MG, UNK
  13. ZOVIRAX [Concomitant]
     Active Substance: ACYCLOVIR
     Dosage: 200 MG, 2X/DAY [UNTIL CLEARED]
     Route: 048
  14. LIDOCAINE AND PRILOCAINE [Concomitant]
     Active Substance: LIDOCAINE\PRILOCAINE
     Dosage: UNK, (AS DIRECTED. 45 MINUTES BEFORE TREATMENT) [LIDOCAINE: 2.5%; PRILOCAINE: 2.5%]
     Route: 061
  15. HALDOL [Concomitant]
     Active Substance: HALOPERIDOL
     Indication: PAIN
     Dosage: UNK
  16. MORPHINE [Concomitant]
     Active Substance: MORPHINE
     Indication: PAIN
     Dosage: UNK
  17. LORAZEPAM. [Concomitant]
     Active Substance: LORAZEPAM
     Indication: ANXIETY

REACTIONS (3)
  - Neoplasm progression [Unknown]
  - Death [Fatal]
  - Product use in unapproved indication [Unknown]

NARRATIVE: CASE EVENT DATE: 201307
